FAERS Safety Report 6936892-1 (Version None)
Quarter: 2010Q3

REPORT INFORMATION
  Report Type: 
  Country: None (occurrence: None)
  Receive Date: 20100823
  Receipt Date: 20100816
  Transmission Date: 20110219
  Serious: Yes (Other)
  Sender: FDA-Public Use
  Company Number: BR-BRISTOL-MYERS SQUIBB COMPANY-15217300

PATIENT
  Age: 57 Year
  Sex: Male

DRUGS (4)
  1. REYATAZ [Suspect]
     Indication: HIV INFECTION
     Dosage: INTERRUPTED ON 12JUL2010; REYATAZ (ATAZANAVIR 300MG TABLETS)
     Dates: start: 20100701
  2. RITONAVIR [Suspect]
     Indication: HIV INFECTION
     Dates: start: 20100701
  3. BIOVIR [Suspect]
     Indication: HIV INFECTION
     Dates: start: 20100701
  4. BACTRIM [Concomitant]
     Indication: ANTIBIOTIC PROPHYLAXIS

REACTIONS (4)
  - EYELID OEDEMA [None]
  - MALAISE [None]
  - NAUSEA [None]
  - RASH [None]
